FAERS Safety Report 15873632 (Version 1)
Quarter: 2019Q1

REPORT INFORMATION
  Report Type: Other
  Country: US (occurrence: US)
  Receive Date: 20190126
  Receipt Date: 20190126
  Transmission Date: 20190417
  Serious: No
  Sender: FDA-Public Use
  Company Number: US-ACORDA-ACO_150103_2018

PATIENT
  Age: 72 Year
  Sex: Female

DRUGS (1)
  1. AMPYRA [Suspect]
     Active Substance: DALFAMPRIDINE
     Indication: PRODUCT USED FOR UNKNOWN INDICATION
     Dosage: 10 MG, QAM
     Route: 065

REACTIONS (7)
  - Dysgraphia [Unknown]
  - Psychiatric symptom [Unknown]
  - Drug ineffective [Unknown]
  - Gait disturbance [Unknown]
  - Hypokinesia [Unknown]
  - Drug effect decreased [Unknown]
  - Fear [Unknown]

NARRATIVE: CASE EVENT DATE: 20180301
